FAERS Safety Report 9846914 (Version 2)
Quarter: 2014Q1

REPORT INFORMATION
  Report Type: Spontaneous
  Country: MY (occurrence: MY)
  Receive Date: 20140127
  Receipt Date: 20140326
  Transmission Date: 20141002
  Serious: Yes (Other)
  Sender: FDA-Public Use
  Company Number: MY-PFIZER INC-2014022011

PATIENT
  Age: 49 Year
  Sex: Male
  Weight: 70 kg

DRUGS (2)
  1. DETRUSITOL SR [Suspect]
     Indication: BENIGN PROSTATIC HYPERPLASIA
     Dosage: 4 MG, OD
     Route: 048
     Dates: start: 20120514, end: 20120515
  2. HARNAL [Suspect]
     Indication: BENIGN PROSTATIC HYPERPLASIA
     Dosage: 400 UG, DAILY (OD)
     Route: 048
     Dates: start: 20120514, end: 20120516

REACTIONS (2)
  - Dyspnoea [Recovered/Resolved]
  - Tongue movement disturbance [Recovered/Resolved]
